FAERS Safety Report 5097110-5 (Version None)
Quarter: 2006Q3

REPORT INFORMATION
  Report Type: 
  Country: None (occurrence: None)
  Receive Date: 20060901
  Receipt Date: 20060818
  Transmission Date: 20061208
  Serious: Yes (Hospitalization)
  Sender: FDA-Public Use
  Company Number: 2006PV019705

PATIENT
  Age: 73 Year
  Sex: Male
  Weight: 89.8122 kg

DRUGS (14)
  1. BYETTA [Suspect]
     Indication: DIABETES MELLITUS NON-INSULIN-DEPENDENT
     Dosage: SEE IMAGE, SC
     Route: 058
     Dates: start: 20060201, end: 20060601
  2. BYETTA [Suspect]
     Indication: DIABETES MELLITUS NON-INSULIN-DEPENDENT
     Dosage: SEE IMAGE, SC
     Route: 058
     Dates: start: 20060601
  3. DIABETA [Concomitant]
  4. METFORMIN [Concomitant]
  5. ACTOS [Concomitant]
  6. BENAZEPRIL HYDROCHLORIDE [Concomitant]
  7. FUROSEMIDE [Concomitant]
  8. LIPITOR [Concomitant]
  9. PLAVIX [Concomitant]
  10. TOPROL-XL [Concomitant]
  11. TEMAZEPAM [Concomitant]
  12. ONE A DAY MEN'S VITAMIN [Concomitant]
  13. CALCIUM WITH VITAMIN D [Concomitant]
  14. VITAMIN E [Concomitant]

REACTIONS (4)
  - ARRHYTHMIA [None]
  - BLOOD GLUCOSE INCREASED [None]
  - CHEST PAIN [None]
  - DRUG INEFFECTIVE [None]
